FAERS Safety Report 7991411-6 (Version None)
Quarter: 2011Q4

REPORT INFORMATION
  Report Type: 
  Country: None (occurrence: None)
  Receive Date: 20111219
  Receipt Date: 20111214
  Transmission Date: 20120403
  Serious: Yes (Other)
  Sender: FDA-Public Use
  Company Number: CH-JNJFOC-20111112402

PATIENT
  Sex: Female
  Weight: 55 kg

DRUGS (2)
  1. CONCERTA [Suspect]
     Indication: ATTENTION DEFICIT/HYPERACTIVITY DISORDER
     Route: 048
     Dates: start: 20111112, end: 20111119
  2. ESCITALOPRAM [Concomitant]
     Indication: DEPRESSION
     Route: 065
     Dates: start: 20110101

REACTIONS (1)
  - CUPULOLITHIASIS [None]
